FAERS Safety Report 9337314 (Version 1)
Quarter: 2013Q2

REPORT INFORMATION
  Report Type: Spontaneous
  Country: US (occurrence: US)
  Receive Date: 20130607
  Receipt Date: 20130607
  Transmission Date: 20140414
  Serious: Yes (Hospitalization)
  Sender: FDA-Public Use
  Company Number: US-GLAXOSMITHKLINE-A0789215A

PATIENT
  Age: 47 Year
  Sex: Male
  Weight: 137 kg

DRUGS (1)
  1. AVANDIA [Suspect]
     Indication: DIABETES MELLITUS
     Dosage: 2MG TWICE PER DAY
     Route: 048
     Dates: start: 200101, end: 200607

REACTIONS (4)
  - Cardiac failure [Unknown]
  - Angina unstable [Unknown]
  - Myocardial ischaemia [Unknown]
  - Myocardial infarction [Unknown]
